FAERS Safety Report 16725859 (Version 2)
Quarter: 2019Q3

REPORT INFORMATION
  Report Type: Report from Study
  Country: GB (occurrence: GB)
  Receive Date: 20190821
  Receipt Date: 20190827
  Transmission Date: 20191005
  Serious: Yes (Hospitalization)
  Sender: FDA-Public Use
  Company Number: GB-CELGENEUS-GBR-20190711393

PATIENT
  Age: 71 Year
  Sex: Female
  Weight: 69.8 kg

DRUGS (13)
  1. RISPERIDONE. [Concomitant]
     Active Substance: RISPERIDONE
     Indication: SCHIZOPHRENIA
     Dosage: 500 MICROGRAM
     Route: 048
     Dates: start: 2009
  2. OMEPRAZOLE. [Concomitant]
     Active Substance: OMEPRAZOLE
     Indication: PROPHYLAXIS
     Dosage: 20 MILLIGRAM
     Route: 048
     Dates: start: 2009
  3. CIPROFLOXACIN. [Concomitant]
     Active Substance: CIPROFLOXACIN
     Indication: INFECTION PROPHYLAXIS
     Dosage: 1000 MILLIGRAM
     Route: 048
     Dates: start: 2019, end: 20190715
  4. FYBOGEL [Concomitant]
     Active Substance: PLANTAGO OVATA SEED
     Indication: CONSTIPATION
     Dosage: 1 SACHET
     Route: 065
     Dates: start: 20190722
  5. RISPERIDONE. [Concomitant]
     Active Substance: RISPERIDONE
     Dosage: 1000 MICROGRAM
     Route: 048
     Dates: start: 2009
  6. AG-221 [Suspect]
     Active Substance: ENASIDENIB
     Indication: ACUTE MYELOID LEUKAEMIA
     Dosage: 100 MILLIGRAM
     Route: 048
     Dates: start: 20190715
  7. AMILORIDE [Concomitant]
     Active Substance: AMILORIDE
     Indication: HYPOKALAEMIA
     Dosage: 5 MILLIGRAM
     Route: 048
     Dates: start: 201903
  8. FLUCONAZOLE. [Concomitant]
     Active Substance: FLUCONAZOLE
     Indication: ANTIFUNGAL PROPHYLAXIS
     Dosage: 200 MILLIGRAM
     Route: 048
     Dates: start: 20190715
  9. ONDANSETRON [Concomitant]
     Active Substance: ONDANSETRON
     Indication: PROPHYLAXIS OF NAUSEA AND VOMITING
     Route: 048
  10. ACICLOVIR [Concomitant]
     Active Substance: ACYCLOVIR
     Indication: ANTIVIRAL PROPHYLAXIS
     Dosage: 800 MILLIGRAM
     Route: 048
     Dates: start: 20190715
  11. LEVOFLOXACIN. [Concomitant]
     Active Substance: LEVOFLOXACIN
     Indication: ANTIBIOTIC PROPHYLAXIS
     Dosage: 500 MILLIGRAM
     Route: 048
     Dates: start: 20190715
  12. COTRIMOXAZOLE [Concomitant]
     Active Substance: SULFAMETHOXAZOLE\TRIMETHOPRIM
     Indication: ANTIFUNGAL PROPHYLAXIS
     Route: 048
     Dates: start: 20190715
  13. LEVOFLOXACIN. [Concomitant]
     Active Substance: LEVOFLOXACIN
     Dosage: 750 MILLIGRAM
     Route: 048
     Dates: start: 20190812

REACTIONS (4)
  - Thrombocytopenia [Recovered/Resolved with Sequelae]
  - Febrile neutropenia [Recovered/Resolved]
  - Mouth haemorrhage [Recovered/Resolved]
  - Epistaxis [Unknown]

NARRATIVE: CASE EVENT DATE: 20190729
